FAERS Safety Report 14524047 (Version 1)
Quarter: 2018Q1

REPORT INFORMATION
  Report Type: Spontaneous
  Country: ES (occurrence: ES)
  Receive Date: 20180213
  Receipt Date: 20180213
  Transmission Date: 20180509
  Serious: Yes (Other)
  Sender: FDA-Public Use
  Company Number: ES-ASTRAZENECA-2018SE13220

PATIENT
  Age: 83 Year
  Sex: Female

DRUGS (4)
  1. PANTOPRAZOLE [Concomitant]
     Active Substance: PANTOPRAZOLE
     Indication: PROPHYLAXIS
     Route: 048
     Dates: start: 201602
  2. CINITAPRIDE [Concomitant]
     Indication: GASTROOESOPHAGEAL REFLUX DISEASE
     Route: 048
  3. BRILIQUE [Suspect]
     Active Substance: TICAGRELOR
     Indication: ACUTE CORONARY SYNDROME
     Route: 048
     Dates: start: 201602, end: 201702
  4. TRIFLUSAL [Concomitant]
     Active Substance: TRIFLUSAL
     Indication: PROPHYLAXIS
     Dosage: UP TO DATE 300 MG-600 MG DAILY
     Dates: start: 201606

REACTIONS (5)
  - Diverticulum oesophageal [Unknown]
  - Cough [Recovering/Resolving]
  - Hiatus hernia [Unknown]
  - Dysphagia [Recovering/Resolving]
  - Vocal cord paralysis [Unknown]

NARRATIVE: CASE EVENT DATE: 201702
